FAERS Safety Report 8145301-9 (Version None)
Quarter: 2012Q1

REPORT INFORMATION
  Report Type: 
  Country: None (occurrence: None)
  Receive Date: 20120217
  Receipt Date: 20120206
  Transmission Date: 20120608
  Serious: Yes (Death)
  Sender: FDA-Public Use
  Company Number: ES-ACTELION-A-CH2011-54072

PATIENT
  Sex: Male

DRUGS (9)
  1. LOSARTAN POTASSIUM [Concomitant]
  2. THIAZIDE [Concomitant]
  3. TRACLEER [Suspect]
     Dosage: 62.5 MG, BID
     Route: 048
     Dates: start: 20030121, end: 20030605
  4. TRACLEER [Suspect]
     Indication: PULMONARY ARTERIAL HYPERTENSION
     Dosage: 125 MG, BID
     Route: 048
     Dates: start: 20030606, end: 20080520
  5. SILDENAFIL [Concomitant]
  6. ESPIROLACTONA [Concomitant]
  7. SINTROM [Concomitant]
  8. FERRUM [Concomitant]
  9. FUROSEMIDE [Concomitant]

REACTIONS (2)
  - DISEASE PROGRESSION [None]
  - PULMONARY ARTERIAL HYPERTENSION [None]
